FAERS Safety Report 14601760 (Version 2)
Quarter: 2018Q1

REPORT INFORMATION
  Report Type: Report from Study
  Country: None (occurrence: NL)
  Receive Date: 20180306
  Receipt Date: 20180309
  Transmission Date: 20180509
  Serious: Yes (Hospitalization)
  Sender: FDA-Public Use
  Company Number: NL-ABBVIE-18K-114-2274807-00

PATIENT
  Sex: Male

DRUGS (2)
  1. DUODOPA [Suspect]
     Active Substance: CARBIDOPA\LEVODOPA
     Dosage: MORNING DOSE: 5.7 CONTINUOUS DOSE: 4.3 EXTRA DOSE: 2.9 NIGHT DOSE: 3.4
     Route: 050
  2. DUODOPA [Suspect]
     Active Substance: CARBIDOPA\LEVODOPA
     Indication: PARKINSON^S DISEASE
     Dosage: MD 5.7, CD 4.6, ED 2.9, CND 3.4, END 2.9
     Route: 050
     Dates: start: 20110415

REACTIONS (3)
  - Confusional state [Not Recovered/Not Resolved]
  - Adverse event [Not Recovered/Not Resolved]
  - Dehydration [Not Recovered/Not Resolved]
